FAERS Safety Report 8106648-5 (Version None)
Quarter: 2012Q1

REPORT INFORMATION
  Report Type: 
  Country: None (occurrence: None)
  Receive Date: 20120202
  Receipt Date: 20120125
  Transmission Date: 20120608
  Serious: Yes (Hospitalization, Other)
  Sender: FDA-Public Use
  Company Number: US-BAYER-2011-055914

PATIENT
  Age: 43 Year
  Sex: Female
  Weight: 78.458 kg

DRUGS (15)
  1. LEXAPRO [Concomitant]
     Indication: SLEEP DISORDER THERAPY
     Dosage: UNK
     Dates: start: 20031001, end: 20050101
  2. PROTONIX [Concomitant]
     Indication: ABDOMINAL DISCOMFORT
     Dosage: UNK
     Dates: start: 20040701
  3. ACIPHEX [Concomitant]
     Indication: GASTROOESOPHAGEAL REFLUX DISEASE
     Dosage: UNK
     Dates: start: 20040901, end: 20050101
  4. CELEBREX [Concomitant]
     Indication: ARTHRALGIA
     Dosage: UNK
     Dates: start: 20030101, end: 20050101
  5. ASPIRIN [Concomitant]
     Indication: HEART RATE IRREGULAR
     Dosage: UNK
     Dates: start: 20040629
  6. MIDRIN [Concomitant]
     Dosage: UNK
     Dates: start: 20040601
  7. DEXTROMETHORPHAN HYDROBROMIDE W/GUAIFENESIN [Concomitant]
  8. ZITHROMAX [Concomitant]
  9. YASMIN [Suspect]
     Indication: PRODUCT USED FOR UNKNOWN INDICATION
     Dosage: UNK
     Dates: start: 20031001, end: 20040701
  10. LIPITOR [Concomitant]
     Indication: HYPERCHOLESTEROLAEMIA
     Dosage: UNK
     Dates: start: 20030101
  11. WELLBUTRIN [Concomitant]
     Indication: DEPRESSION
     Dosage: UNK
     Dates: start: 20040901, end: 20050101
  12. DETROL LA [Concomitant]
     Indication: URINARY INCONTINENCE
     Dosage: UNK
     Dates: start: 20050901
  13. INDOMETHACIN [Concomitant]
  14. TOPROL-XL [Concomitant]
     Indication: HEART RATE IRREGULAR
     Dosage: UNK
     Dates: start: 20040629
  15. ALBUTEROL [Concomitant]
     Dosage: UNK
     Dates: start: 20040701

REACTIONS (9)
  - PAIN [None]
  - GENERAL PHYSICAL HEALTH DETERIORATION [None]
  - ANXIETY [None]
  - DYSPNOEA [None]
  - EYE HAEMORRHAGE [None]
  - EMOTIONAL DISTRESS [None]
  - PULMONARY EMBOLISM [None]
  - CHEST PAIN [None]
  - UTERINE HAEMORRHAGE [None]
